FAERS Safety Report 9888104 (Version 3)
Quarter: 2014Q2

REPORT INFORMATION
  Report Type: Spontaneous
  Country: BR (occurrence: BR)
  Receive Date: 20140211
  Receipt Date: 20140414
  Transmission Date: 20141212
  Serious: Yes (Hospitalization, Other)
  Sender: FDA-Public Use
  Company Number: BR-NOVOPROD-399960

PATIENT
  Age: 75 Year
  Sex: Male
  Weight: 64 kg

DRUGS (7)
  1. NOVOLIN N PENFILL [Suspect]
     Indication: TYPE 2 DIABETES MELLITUS
     Dosage: 10 IU, QD
     Route: 058
     Dates: start: 1994
  2. SINVASTATINA [Concomitant]
     Indication: BLOOD CHOLESTEROL ABNORMAL
     Dosage: 1 TAB, QD (20 MG)
     Route: 048
  3. ENALAPRIL [Concomitant]
     Indication: HYPERTENSION
     Dosage: 2 TAB, QD (10 MG)
     Route: 048
  4. AMLODIPINE [Concomitant]
     Indication: HYPERTENSION
     Dosage: 1 TAB, QD
     Route: 048
  5. GLIFAGE [Concomitant]
     Indication: HYPERTENSION
     Dosage: 2 TAB, QD ( 500 MG)
     Route: 048
  6. SOMALGIN [Concomitant]
     Indication: CARDIAC DISORDER
     Dosage: 2 TAB, QD
     Route: 048
  7. ATENOLOL [Concomitant]
     Indication: HYPERTENSION
     Dosage: 2 TAB, QD (25 MG)
     Route: 048

REACTIONS (2)
  - Cerebrovascular accident [Recovered/Resolved with Sequelae]
  - Device malfunction [Unknown]
